FAERS Safety Report 12272114 (Version 1)
Quarter: 2016Q2

REPORT INFORMATION
  Report Type: Report from Study
  Country: US (occurrence: US)
  Receive Date: 20160415
  Receipt Date: 20160415
  Transmission Date: 20160815
  Serious: Yes (Hospitalization, Other)
  Sender: FDA-Public Use
  Company Number: US-BAYER-2015-430425

PATIENT
  Age: 78 Year
  Sex: Male

DRUGS (4)
  1. NEXAVAR [Suspect]
     Active Substance: SORAFENIB
     Indication: RENAL CANCER
     Dosage: UNK
     Route: 048
     Dates: start: 20151018, end: 20160308
  2. VITAMIN B12 [Concomitant]
     Active Substance: CYANOCOBALAMIN
     Dosage: 1000 MCG
     Route: 030
  3. SANDOSTATIN LAR DEPOT [Concomitant]
     Active Substance: OCTREOTIDE ACETATE
     Dosage: 20 MG, UNK
     Route: 030
  4. NEXAVAR [Suspect]
     Active Substance: SORAFENIB
     Indication: RENAL CANCER
     Dosage: 400 MG, BID
     Route: 048
     Dates: start: 20150908, end: 2015

REACTIONS (12)
  - Intestinal perforation [None]
  - Fatigue [None]
  - Electrolyte imbalance [None]
  - Urinary hesitation [Not Recovered/Not Resolved]
  - Diarrhoea [Unknown]
  - Flank pain [Not Recovered/Not Resolved]
  - Metastases to lung [None]
  - Rash papular [Not Recovered/Not Resolved]
  - Dehydration [None]
  - Abdominal pain upper [Not Recovered/Not Resolved]
  - Diverticulitis [None]
  - Blood pressure increased [Not Recovered/Not Resolved]

NARRATIVE: CASE EVENT DATE: 201509
